FAERS Safety Report 16871433 (Version 1)
Quarter: 2019Q3

REPORT INFORMATION
  Report Type: Spontaneous
  Country: US (occurrence: US)
  Receive Date: 20190806
  Receipt Date: 20190806
  Transmission Date: 20191007
  Serious: Yes (Other)
  Sender: FDA-Public Use
  Company Number: None

PATIENT
  Age: 68 Year
  Sex: Male
  Weight: 77.11 kg

DRUGS (2)
  1. BUTRANS [Suspect]
     Active Substance: BUPRENORPHINE
     Dosage: ?          QUANTITY:4 DF DOSAGE FORM;?
     Route: 062
     Dates: start: 20190729, end: 20190801
  2. HYSINGLA ER [Suspect]
     Active Substance: HYDROCODONE BITARTRATE

REACTIONS (5)
  - Balance disorder [None]
  - Drug interaction [None]
  - Vision blurred [None]
  - Nausea [None]
  - Vertigo [None]

NARRATIVE: CASE EVENT DATE: 20190729
